FAERS Safety Report 7776714-2 (Version None)
Quarter: 2011Q3

REPORT INFORMATION
  Report Type: 
  Country: None (occurrence: None)
  Receive Date: 20110922
  Receipt Date: 20110922
  Transmission Date: 20111222
  Serious: Yes (Other)
  Sender: FDA-Public Use
  Company Number: None

PATIENT
  Age: 66 Year
  Sex: Female
  Weight: 47.7 kg

DRUGS (1)
  1. CLONAZEPAM [Suspect]
     Indication: SLEEP DISORDER
     Dates: start: 20110820, end: 20110914

REACTIONS (3)
  - HEART RATE INCREASED [None]
  - PRODUCT SUBSTITUTION ISSUE [None]
  - PRODUCT QUALITY ISSUE [None]
